FAERS Safety Report 14314317 (Version 2)
Quarter: 2018Q3

REPORT INFORMATION
  Report Type: Spontaneous
  Country: CZ (occurrence: CZ)
  Receive Date: 20171221
  Receipt Date: 20180918
  Transmission Date: 20181010
  Serious: Yes (Hospitalization, Other)
  Sender: FDA-Public Use
  Company Number: CZ-CIPLA LTD.-2017CZ23753

PATIENT

DRUGS (28)
  1. IRINOTECAN [Suspect]
     Active Substance: IRINOTECAN
     Indication: COLORECTAL CANCER METASTATIC
     Dosage: 275 MG, CYCLICAL, SOLUTIONFOR INFUSION
     Route: 041
     Dates: start: 20150908, end: 20150908
  2. FLUOROURACIL. [Suspect]
     Active Substance: FLUOROURACIL
     Dosage: 3700 MG, UNK, CYCLICAL
     Route: 041
     Dates: start: 20150908, end: 20150908
  3. FOLINIC ACID [Suspect]
     Active Substance: LEUCOVORIN
     Indication: RECTAL ADENOCARCINOMA
     Dosage: UNK
     Route: 065
  4. EMEND [Concomitant]
     Active Substance: APREPITANT
     Indication: PROPHYLAXIS
     Dosage: UNK
     Route: 065
  5. MEGACE [Concomitant]
     Active Substance: MEGESTROL ACETATE
     Dosage: UNK
     Route: 065
     Dates: start: 20150922
  6. MEGACE [Concomitant]
     Active Substance: MEGESTROL ACETATE
     Dosage: UNK
     Route: 065
  7. HELICID                            /00661201/ [Concomitant]
     Dosage: UNK
     Route: 065
     Dates: start: 20150908, end: 20150908
  8. HELICID                            /00661201/ [Concomitant]
     Indication: PROPHYLAXIS
     Dosage: UNK
     Route: 065
     Dates: start: 20150908, end: 20150925
  9. LEUCOVORINE [Suspect]
     Active Substance: LEUCOVORIN
     Dosage: 610 MG, UNK (1 CYCLICAL)
     Route: 041
     Dates: start: 20150908, end: 20150908
  10. FLUOROURACIL. [Suspect]
     Active Substance: FLUOROURACIL
     Dosage: 610 MG, QCY, SOLUTION FOR INFUSION
     Route: 040
     Dates: start: 20150908, end: 20150908
  11. PANITUMUMAB [Suspect]
     Active Substance: PANITUMUMAB
     Indication: RECTAL ADENOCARCINOMA
     Dosage: UNK
     Route: 065
  12. EMEND [Concomitant]
     Active Substance: APREPITANT
     Dosage: UNK
     Route: 065
     Dates: start: 20150925, end: 20150927
  13. HELICID                            /00661201/ [Concomitant]
     Dosage: UNK
     Route: 065
  14. OXALIPLATIN. [Concomitant]
     Active Substance: OXALIPLATIN
     Indication: RECTAL ADENOCARCINOMA
     Dosage: UNK
     Route: 065
  15. FLUOROURACIL. [Suspect]
     Active Substance: FLUOROURACIL
     Indication: COLORECTAL CANCER METASTATIC
     Dosage: 610 MG AND 3700 MG, CYCLICAL
     Route: 040
     Dates: start: 20150908, end: 20150908
  16. FLUOROURACIL. [Suspect]
     Active Substance: FLUOROURACIL
     Dosage: UNK
     Route: 065
  17. PANITUMUMAB [Suspect]
     Active Substance: PANITUMUMAB
     Dosage: UNK
     Route: 007
  18. AFLIBERCEPT [Suspect]
     Active Substance: AFLIBERCEPT
     Dosage: 212 MG, CYCLICAL, SOLUTION FOR INFUSION
     Route: 041
     Dates: start: 20150908, end: 20150908
  19. LEUCOVORINE [Suspect]
     Active Substance: LEUCOVORIN
     Indication: COLORECTAL CANCER METASTATIC
     Dosage: UNK
     Route: 065
  20. DEGAN [Concomitant]
     Active Substance: METOCLOPRAMIDE HYDROCHLORIDE
     Indication: PROPHYLAXIS
     Dosage: UNK
     Route: 065
     Dates: start: 20150908, end: 20150908
  21. FLUOROURACIL. [Suspect]
     Active Substance: FLUOROURACIL
     Indication: RECTAL ADENOCARCINOMA
     Dosage: 3700 MG, UNK
     Route: 041
     Dates: start: 20150908, end: 20150908
  22. AFLIBERCEPT [Suspect]
     Active Substance: AFLIBERCEPT
     Indication: COLORECTAL CANCER METASTATIC
     Dosage: 275 MG, CYCLIC, SOLUTION FOR INFUSION
     Route: 041
  23. LEUCOVORINE [Suspect]
     Active Substance: LEUCOVORIN
     Dosage: 610 MG, QCY, SOLUTION FOR INFUSION
     Route: 041
     Dates: start: 20150908, end: 20150908
  24. DEGAN [Concomitant]
     Active Substance: METOCLOPRAMIDE HYDROCHLORIDE
     Dosage: UNK
     Route: 065
     Dates: start: 20150925, end: 20150925
  25. MEGACE [Concomitant]
     Active Substance: MEGESTROL ACETATE
     Indication: PROPHYLAXIS
     Dosage: UNK
     Route: 065
  26. OXALIPLATIN. [Concomitant]
     Active Substance: OXALIPLATIN
     Dosage: UNK
     Route: 065
  27. IRINOTECAN [Suspect]
     Active Substance: IRINOTECAN
     Dosage: 275 MG, CYCLICAL, CONCENTRATE FOR SOLUTION FOR INFUSION
     Route: 041
  28. EMEND [Concomitant]
     Active Substance: APREPITANT
     Dosage: UNK
     Route: 065
     Dates: start: 20150908, end: 20150927

REACTIONS (3)
  - Off label use [Unknown]
  - Hiccups [Recovered/Resolved]
  - Haematuria [Recovered/Resolved]

NARRATIVE: CASE EVENT DATE: 20151009
